FAERS Safety Report 7863756-1 (Version None)
Quarter: 2011Q4

REPORT INFORMATION
  Report Type: 
  Country: None (occurrence: None)
  Receive Date: 20111027
  Receipt Date: 20101209
  Transmission Date: 20120403
  Serious: No
  Sender: FDA-Public Use
  Company Number: US-AMGEN-USASP2010008535

PATIENT
  Age: 48 Year
  Sex: Female

DRUGS (3)
  1. ENBREL [Suspect]
     Indication: RHEUMATOID ARTHRITIS
     Dosage: 50 MG, QWK
     Dates: start: 20030101
  2. BACTRIM [Suspect]
     Indication: SINUSITIS
  3. METHOTREXATE [Concomitant]

REACTIONS (1)
  - SINUSITIS [None]
